FAERS Safety Report 7918131-8 (Version None)
Quarter: 2011Q4

REPORT INFORMATION
  Report Type: 
  Country: None (occurrence: None)
  Receive Date: 20111114
  Receipt Date: 20111031
  Transmission Date: 20120403
  Serious: Yes (Hospitalization, Congenital Anomaly)
  Sender: FDA-Public Use
  Company Number: 1000025305

PATIENT
  Age: 1 Hour
  Sex: Male

DRUGS (2)
  1. SERTRALINE HYDROCHLORIDE [Suspect]
     Dosage: 100 MG (THE MOTHER STARTED 3 WEEKS BEFORE DELIVERY) (100 MG, 1 IN 1 D), TRANSPLACENTAL
     Route: 064
     Dates: start: 20110701
  2. CITALOPRAM HYDROBROMIDE [Suspect]
     Dosage: 40 MG (TAKEN UNTIL 3 WEEKS BEFORE DELIVERY) (40 MG, 1 IN 1 D), TRANSPLACENTAL
     Route: 064
     Dates: start: 20010101, end: 20110701

REACTIONS (4)
  - NEONATAL RESPIRATORY DISTRESS SYNDROME [None]
  - MATERNAL DRUGS AFFECTING FOETUS [None]
  - HYPOTONIA NEONATAL [None]
  - PALLOR [None]
